FAERS Safety Report 13561650 (Version 1)
Quarter: 2017Q2

REPORT INFORMATION
  Report Type: Spontaneous
  Country: US (occurrence: US)
  Receive Date: 20170518
  Receipt Date: 20170518
  Transmission Date: 20170830
  Serious: Yes (Other)
  Sender: FDA-Public Use
  Company Number: US-PFIZER INC-2017212848

PATIENT
  Sex: Female

DRUGS (1)
  1. CHAPSTICK CLASSICS ORIGINAL [Suspect]
     Active Substance: PADIMATE O\PETROLATUM

REACTIONS (5)
  - Stomatitis [Unknown]
  - Dyspnoea [Unknown]
  - Oral discomfort [Not Recovered/Not Resolved]
  - Dry mouth [Unknown]
  - Coeliac disease [Not Recovered/Not Resolved]
